FAERS Safety Report 8133491-3 (Version None)
Quarter: 2012Q1

REPORT INFORMATION
  Report Type: 
  Country: None (occurrence: None)
  Receive Date: 20120213
  Receipt Date: 20120131
  Transmission Date: 20120608
  Serious: Yes (Life-Threatening, Hospitalization, Other)
  Sender: FDA-Public Use
  Company Number: DE-UCBSA-050687

PATIENT
  Sex: Female

DRUGS (2)
  1. ANAKINRA [Suspect]
     Dosage: 100 MG
     Dates: start: 20110201
  2. CIMZIA [Suspect]
     Indication: RHEUMATOID ARTHRITIS
     Route: 058
     Dates: start: 20110101, end: 20110201

REACTIONS (3)
  - LEUKOPENIA [None]
  - MYOCARDIAL INFARCTION [None]
  - CARDIAC ARREST [None]
